FAERS Safety Report 18061783 (Version 1)
Quarter: 2020Q3

REPORT INFORMATION
  Report Type: Spontaneous
  Country: US (occurrence: US)
  Receive Date: 20200723
  Receipt Date: 20200723
  Transmission Date: 20201103
  Serious: Yes (Hospitalization)
  Sender: FDA-Public Use
  Company Number: US-MYLANLABS-2020M1066657

PATIENT
  Age: 61 Year
  Sex: Female

DRUGS (16)
  1. DOBUTAMINE [Interacting]
     Active Substance: DOBUTAMINE HYDROCHLORIDE
     Indication: CARDIAC OUTPUT DECREASED
  2. DOBUTAMINE [Interacting]
     Active Substance: DOBUTAMINE HYDROCHLORIDE
     Indication: CARDIAC INDEX DECREASED
  3. TERBUTALINE [Interacting]
     Active Substance: TERBUTALINE
     Indication: HEART RATE ABNORMAL
     Dosage: 2.5 MILLIGRAM, Q8H
     Route: 048
  4. TERBUTALINE [Interacting]
     Active Substance: TERBUTALINE
     Indication: HAEMODYNAMIC INSTABILITY
  5. FENTANYL. [Concomitant]
     Active Substance: FENTANYL
     Indication: PAIN
     Dosage: 20?75 MCG/KG/HR
     Route: 041
  6. MILRINONE [Concomitant]
     Active Substance: MILRINONE
     Dosage: 0.4 MICROGRAM/KILOGRAM, QMINUTE
  7. EPINEPHRINE. [Interacting]
     Active Substance: EPINEPHRINE
     Indication: VASOPLEGIA SYNDROME
  8. FENTANYL. [Concomitant]
     Active Substance: FENTANYL
     Dosage: THERAPY WEANED OFF
     Route: 041
  9. MILRINONE [Concomitant]
     Active Substance: MILRINONE
     Indication: CARDIAC FAILURE
     Dosage: 0.2 MICROGRAM/KILOGRAM, QMINUTE
  10. EPINEPHRINE. [Suspect]
     Active Substance: EPINEPHRINE
     Indication: CARDIOGENIC SHOCK
     Dosage: 0.05 MICROGRAM/KILOGRAM, QMINUTE
  11. DOBUTAMINE [Interacting]
     Active Substance: DOBUTAMINE HYDROCHLORIDE
     Indication: VASOPLEGIA SYNDROME
  12. DOBUTAMINE [Interacting]
     Active Substance: DOBUTAMINE HYDROCHLORIDE
     Indication: CARDIAC FAILURE
     Dosage: 6 MICROGRAM/KILOGRAM, QMINUTE
  13. DOBUTAMINE [Interacting]
     Active Substance: DOBUTAMINE HYDROCHLORIDE
     Indication: CARDIOGENIC SHOCK
  14. TERBUTALINE [Interacting]
     Active Substance: TERBUTALINE
     Indication: CARDIAC OUTPUT DECREASED
     Dosage: 5 MILLIGRAM, Q8H
     Route: 048
  15. PROPOFOL. [Concomitant]
     Active Substance: PROPOFOL
     Indication: SEDATION
     Dosage: 20?50 MCG/KG/MIN
  16. PROPOFOL. [Concomitant]
     Active Substance: PROPOFOL
     Dosage: THERAPY WEANED OFF
     Route: 041

REACTIONS (3)
  - Drug interaction [Recovered/Resolved]
  - Serotonin syndrome [Recovered/Resolved]
  - Encephalopathy [Recovered/Resolved]
